FAERS Safety Report 4439636-0 (Version None)
Quarter: 2004Q3

REPORT INFORMATION
  Report Type: 
  Country: None (occurrence: None)
  Receive Date: 20040830
  Receipt Date: 20040823
  Transmission Date: 20050211
  Serious: Yes (Death)
  Sender: FDA-Public Use
  Company Number: 2004UW17845

PATIENT
  Sex: Male

DRUGS (3)
  1. NAROPIN [Suspect]
     Dates: start: 20020814
  2. LIDOCAINE [Suspect]
     Dates: start: 20020814
  3. KENALOG [Suspect]
     Dates: start: 20020814

REACTIONS (1)
  - DEATH [None]
